FAERS Safety Report 20485471 (Version 1)
Quarter: 2022Q1

REPORT INFORMATION
  Report Type: Spontaneous
  Country: US (occurrence: None)
  Receive Date: 20220217
  Receipt Date: 20220217
  Transmission Date: 20220423
  Serious: No
  Sender: FDA-Public Use
  Company Number: None

PATIENT
  Age: 44 Year
  Sex: Female

DRUGS (1)
  1. ENTYVIO [Suspect]
     Active Substance: VEDOLIZUMAB
     Indication: Crohn^s disease
     Dosage: OTHER FREQUENCY : EVERY TWO WEEKS;?
     Route: 042
     Dates: start: 20220215, end: 20220215

REACTIONS (9)
  - Disorientation [None]
  - Confusional state [None]
  - Vision blurred [None]
  - Decreased appetite [None]
  - Illness [None]
  - Abdominal pain upper [None]
  - Pain [None]
  - Hypersomnia [None]
  - Haematochezia [None]

NARRATIVE: CASE EVENT DATE: 20220216
